FAERS Safety Report 8561746-7 (Version None)
Quarter: 2012Q3

REPORT INFORMATION
  Report Type: 
  Country: None (occurrence: None)
  Receive Date: 20120802
  Receipt Date: 20120723
  Transmission Date: 20120928
  Serious: Yes (Other)
  Sender: FDA-Public Use
  Company Number: FR-BAXTER-2012BAX012522

PATIENT
  Sex: Female

DRUGS (11)
  1. PRAVASTATIN [Concomitant]
  2. BACTRIM [Concomitant]
  3. ENALAPRIL MALEATE [Concomitant]
  4. ESOMEPRAZOLE MAGNESIUM [Concomitant]
  5. HYDROCORTISONE [Concomitant]
  6. SERETIDE 125 [Concomitant]
  7. SODIUM CHLORIDE [Suspect]
     Dosage: 1 UNIT
     Route: 042
     Dates: start: 20120625, end: 20120625
  8. HEPARIN SODIUM [Suspect]
     Dosage: 1  UNIT
     Route: 042
     Dates: start: 20120625, end: 20120625
  9. HYDROCORTISONE [Concomitant]
  10. SODIUM BICARBONATE [Concomitant]
  11. CALCIUM CHLORIDE [Suspect]
     Dosage: 1 UNIT
     Route: 042
     Dates: start: 20120625, end: 20120625

REACTIONS (1)
  - ANAPHYLACTIC SHOCK [None]
